FAERS Safety Report 4631165-4 (Version None)
Quarter: 2005Q2

REPORT INFORMATION
  Report Type: 
  Country: None (occurrence: None)
  Receive Date: 20050406
  Receipt Date: 20050322
  Transmission Date: 20051028
  Serious: Yes (Hospitalization)
  Sender: FDA-Public Use
  Company Number: 2005BI001349

PATIENT
  Age: 46 Year
  Sex: Female

DRUGS (10)
  1. AVONEX [Suspect]
     Indication: MULTIPLE SCLEROSIS
     Dosage: IM
     Route: 030
     Dates: start: 20000101, end: 20040301
  2. GABAPENTIN [Concomitant]
  3. HYDROCHLOROTHIAZIDE [Concomitant]
  4. BETASERON [Concomitant]
  5. NITROFURANTOIN [Concomitant]
     Indication: MULTIPLE SCLEROSIS
     Dosage: IM
     Route: 030
     Dates: start: 20000101, end: 20040301
  6. GABAPENTIN [Concomitant]
  7. HYDROCHLOROTHIAZIDE [Concomitant]
  8. BETASERON [Concomitant]
  9. NITROFURANTOIN [Concomitant]
  10. PROVIGIL [Concomitant]

REACTIONS (2)
  - MULTIPLE SCLEROSIS [None]
  - PNEUMONIA PNEUMOCOCCAL [None]
